FAERS Safety Report 5858555-6 (Version None)
Quarter: 2008Q3

REPORT INFORMATION
  Report Type: 
  Country: None (occurrence: None)
  Receive Date: 20080826
  Receipt Date: 20080820
  Transmission Date: 20090109
  Serious: Yes (Other)
  Sender: FDA-Public Use
  Company Number: JP-SANOFI-SYNTHELABO-A01200809887

PATIENT
  Age: 81 Year
  Sex: Male
  Weight: 70 kg

DRUGS (6)
  1. PLAVIX [Concomitant]
     Dosage: UNK
  2. LEUCOVORIN CALCIUM [Suspect]
     Dosage: UNK
     Route: 041
  3. FLUOROURACIL [Suspect]
     Dosage: UNK
     Route: 042
  4. ELPLAT [Suspect]
     Indication: COLON CANCER
     Dosage: UNK
     Route: 041
  5. AVASTIN [Suspect]
     Route: 041
     Dates: start: 20080719, end: 20080719
  6. OPALMON [Concomitant]
     Dosage: UNK

REACTIONS (1)
  - CEREBRAL INFARCTION [None]
